FAERS Safety Report 7445333-X (Version None)
Quarter: 2011Q2

REPORT INFORMATION
  Report Type: 
  Country: None (occurrence: None)
  Receive Date: 20110429
  Receipt Date: 20100916
  Transmission Date: 20111010
  Serious: No
  Sender: FDA-Public Use
  Company Number: A0881486A

PATIENT
  Age: 57 Year
  Sex: Female

DRUGS (4)
  1. HEPARIN [Concomitant]
  2. ZANTAC [Concomitant]
  3. ZOFRAN [Suspect]
     Indication: PROPHYLAXIS OF NAUSEA AND VOMITING
     Dosage: 4MG PER DAY
     Route: 042
     Dates: start: 20100908, end: 20100909
  4. INSULIN [Concomitant]

REACTIONS (1)
  - VISION BLURRED [None]
